FAERS Safety Report 12747816 (Version 2)
Quarter: 2021Q1

REPORT INFORMATION
  Report Type: Spontaneous
  Country: US (occurrence: US)
  Receive Date: 20160915
  Receipt Date: 20210104
  Transmission Date: 20210419
  Serious: No
  Sender: FDA-Public Use
  Company Number: US-JAZZ-2016-US-010049

PATIENT
  Sex: Female

DRUGS (41)
  1. CEPHALEXIN [CEFALEXIN] [Concomitant]
     Active Substance: CEPHALEXIN
  2. DIOVAN [Concomitant]
     Active Substance: VALSARTAN
  3. MIRAPEX [Concomitant]
     Active Substance: PRAMIPEXOLE DIHYDROCHLORIDE
  4. HORIZANT [Concomitant]
     Active Substance: GABAPENTIN ENACARBIL
  5. MEDROL [Concomitant]
     Active Substance: METHYLPREDNISOLONE
  6. OMEPRAZOLE. [Concomitant]
     Active Substance: OMEPRAZOLE
  7. SPIRONOLACTONE. [Concomitant]
     Active Substance: SPIRONOLACTONE
  8. TYLENOL EXTRA STRENGTH [Concomitant]
     Active Substance: ACETAMINOPHEN
  9. PROPRANOLOL [PROPRANOLOL HYDROCHLORIDE] [Concomitant]
     Active Substance: PROPRANOLOL HYDROCHLORIDE
  10. ASPIRIN [ACETYLSALICYLIC ACID] [Concomitant]
     Active Substance: ASPIRIN
  11. PROMETHAZINE [PROMETHAZINE HYDROCHLORIDE] [Concomitant]
     Active Substance: PROMETHAZINE HYDROCHLORIDE
  12. XYREM [Suspect]
     Active Substance: SODIUM OXYBATE
     Dosage: 3.75 G, BID
     Route: 048
     Dates: start: 201510
  13. ALBUTEROL SULFATE. [Concomitant]
     Active Substance: ALBUTEROL SULFATE
  14. FLEXERIL [Concomitant]
     Active Substance: CYCLOBENZAPRINE HYDROCHLORIDE
  15. GABAPENTIN. [Concomitant]
     Active Substance: GABAPENTIN
  16. KLONOPIN [Concomitant]
     Active Substance: CLONAZEPAM
  17. NORVASC [Concomitant]
     Active Substance: AMLODIPINE BESYLATE
  18. XYREM [Suspect]
     Active Substance: SODIUM OXYBATE
     Indication: CATAPLEXY
     Dosage: 3 G, BID
     Route: 048
     Dates: start: 201507, end: 201510
  19. NUVIGIL [Concomitant]
     Active Substance: ARMODAFINIL
  20. PREMARIN [Concomitant]
     Active Substance: ESTROGENS, CONJUGATED
  21. NAPROXEN. [Concomitant]
     Active Substance: NAPROXEN
  22. CHANTIX [Concomitant]
     Active Substance: VARENICLINE TARTRATE
  23. CLOBETASOL [CLOBETASOL PROPIONATE] [Concomitant]
  24. LOMOTIL [LOPERAMIDE HYDROCHLORIDE] [Concomitant]
     Active Substance: LOPERAMIDE HYDROCHLORIDE
  25. TOPAMAX [Concomitant]
     Active Substance: TOPIRAMATE
  26. CLONIDINE HCL [Concomitant]
     Active Substance: CLONIDINE HYDROCHLORIDE
  27. TRAMADOL HCL [Concomitant]
     Active Substance: TRAMADOL HYDROCHLORIDE
  28. ADVAIR HFA [Concomitant]
     Active Substance: FLUTICASONE PROPIONATE\SALMETEROL XINAFOATE
  29. MELOXICAM. [Concomitant]
     Active Substance: MELOXICAM
  30. FLOVENT HFA [Concomitant]
     Active Substance: FLUTICASONE PROPIONATE
  31. REQUIP [Concomitant]
     Active Substance: ROPINIROLE HYDROCHLORIDE
  32. XYREM [Suspect]
     Active Substance: SODIUM OXYBATE
     Indication: NARCOLEPSY
     Dosage: 2.25 G, BID
     Route: 048
     Dates: start: 201507, end: 201507
  33. HYOSCYAMINE [HYOSCYAMINE SULFATE] [Concomitant]
  34. VENTOLIN HFA [Concomitant]
     Active Substance: ALBUTEROL SULFATE
  35. CLARITIN [Concomitant]
     Active Substance: LORATADINE
  36. DICYCLOMINE [DICYCLOVERINE HYDROCHLORIDE] [Concomitant]
     Active Substance: DICYCLOMINE HYDROCHLORIDE
  37. DULOXETINE HCL [Concomitant]
     Active Substance: DULOXETINE HYDROCHLORIDE
  38. FLUTICASONE PROPIONATE. [Concomitant]
     Active Substance: FLUTICASONE PROPIONATE
  39. SIMVASTATIN. [Concomitant]
     Active Substance: SIMVASTATIN
  40. ADDERALL [Concomitant]
     Active Substance: AMPHETAMINE ASPARTATE\AMPHETAMINE SULFATE\DEXTROAMPHETAMINE SACCHARATE\DEXTROAMPHETAMINE SULFATE
  41. LORATADINE. [Concomitant]
     Active Substance: LORATADINE

REACTIONS (4)
  - Fall [Recovered/Resolved]
  - Unevaluable event [Unknown]
  - Hallucination [Recovered/Resolved]
  - Injury [Unknown]

NARRATIVE: CASE EVENT DATE: 2015
